FAERS Safety Report 6584314-5 (Version None)
Quarter: 2010Q1

REPORT INFORMATION
  Report Type: 
  Country: None (occurrence: None)
  Receive Date: 20100216
  Receipt Date: 20100208
  Transmission Date: 20100710
  Serious: No
  Sender: FDA-Public Use
  Company Number: US-ABBOTT-10P-163-0625059-00

PATIENT
  Sex: Male
  Weight: 81.266 kg

DRUGS (5)
  1. SIMCOR [Suspect]
     Indication: CARDIOVASCULAR DISORDER
     Dosage: 1000/40 MG
     Route: 048
     Dates: start: 20100101
  2. COREG [Concomitant]
     Indication: DRUG USE FOR UNKNOWN INDICATION
  3. ALTACE [Concomitant]
     Indication: DRUG USE FOR UNKNOWN INDICATION
  4. LOVAZA [Concomitant]
     Indication: DRUG USE FOR UNKNOWN INDICATION
  5. ALDACTONE [Concomitant]
     Indication: DRUG USE FOR UNKNOWN INDICATION

REACTIONS (1)
  - FLUSHING [None]
